FAERS Safety Report 14200252 (Version 1)
Quarter: 2017Q4

REPORT INFORMATION
  Report Type: Report from Study
  Country: CA (occurrence: CA)
  Receive Date: 20171117
  Receipt Date: 20171117
  Transmission Date: 20180321
  Serious: Yes (Other)
  Sender: FDA-Public Use
  Company Number: CA-BRISTOL-MYERS SQUIBB COMPANY-BMS-2017-102641

PATIENT
  Age: 66 Year
  Sex: Female

DRUGS (1)
  1. DASATINIB. [Suspect]
     Active Substance: DASATINIB
     Indication: PRODUCT USED FOR UNKNOWN INDICATION
     Dosage: 140 MG, QWK
     Route: 048

REACTIONS (5)
  - Malaise [Unknown]
  - Product use in unapproved indication [Unknown]
  - Blood chloride abnormal [Unknown]
  - Ankle fracture [Unknown]
  - Retching [Unknown]
